FAERS Safety Report 11772917 (Version 1)
Quarter: 2015Q4

REPORT INFORMATION
  Report Type: Spontaneous
  Country: CA (occurrence: CA)
  Receive Date: 20151124
  Receipt Date: 20151124
  Transmission Date: 20160304
  Serious: Yes (Death)
  Sender: FDA-Public Use
  Company Number: CA-ACTELION-A-US2015-127480

PATIENT
  Age: 35 Year
  Sex: Female

DRUGS (5)
  1. CARIPUL [Suspect]
     Active Substance: EPOPROSTENOL
     Indication: PULMONARY ARTERIAL HYPERTENSION
     Dosage: 84 NG/KG, PER MIN
     Route: 042
     Dates: start: 20140325
  2. PANTOLOC [Concomitant]
     Active Substance: PANTOPRAZOLE SODIUM
  3. ADCIRCA [Concomitant]
     Active Substance: TADALAFIL
  4. POTASSIUM [Concomitant]
     Active Substance: POTASSIUM
  5. TOLOXIN [Concomitant]
     Active Substance: DIGOXIN

REACTIONS (2)
  - Disease progression [Fatal]
  - Pulmonary hypertension [Fatal]

NARRATIVE: CASE EVENT DATE: 20151112
